FAERS Safety Report 20658575 (Version 1)
Quarter: 2022Q1

REPORT INFORMATION
  Report Type: Spontaneous
  Country: US (occurrence: US)
  Receive Date: 20220331
  Receipt Date: 20220331
  Transmission Date: 20220423
  Serious: No
  Sender: FDA-Public Use
  Company Number: US-SA-SAC20220330000638

PATIENT
  Sex: Female

DRUGS (12)
  1. DUPIXENT [Suspect]
     Active Substance: DUPILUMAB
     Indication: Illness
     Dosage: 300 MG, QOW
     Route: 058
  2. TEZEPELUMAB [Concomitant]
     Active Substance: TEZEPELUMAB
  3. ESTRING [Concomitant]
     Active Substance: ESTRADIOL
  4. BRISDELLE [Concomitant]
     Active Substance: PAROXETINE MESYLATE
  5. AUGMENTIN [Concomitant]
     Active Substance: AMOXICILLIN\CLAVULANATE POTASSIUM
  6. PREDNISONE [Concomitant]
     Active Substance: PREDNISONE
  7. MONTELUKAST SODIUM [Concomitant]
     Active Substance: MONTELUKAST SODIUM
  8. INCRUSE ELLIPTA [Concomitant]
     Active Substance: UMECLIDINIUM BROMIDE
  9. BREO ELLIPTA [Concomitant]
     Active Substance: FLUTICASONE FUROATE\VILANTEROL TRIFENATATE
  10. ESOMEPRAZOLE MAGNESIUM [Concomitant]
     Active Substance: ESOMEPRAZOLE MAGNESIUM
  11. ASCORBIC ACID\ERGOCALCIFEROL\NIACINAMIDE\RETINOL\RIBOFLAVIN\THIAMINE [Concomitant]
     Active Substance: ASCORBIC ACID\ERGOCALCIFEROL\NIACINAMIDE\RETINOL\RIBOFLAVIN\THIAMINE
  12. TIZANIDINE HYDROCHLORIDE [Concomitant]
     Active Substance: TIZANIDINE HYDROCHLORIDE

REACTIONS (2)
  - Asthma [Unknown]
  - COVID-19 [Unknown]
